FAERS Safety Report 19660503 (Version 1)
Quarter: 2021Q3

REPORT INFORMATION
  Report Type: Spontaneous
  Country: US (occurrence: US)
  Receive Date: 20210804
  Receipt Date: 20210804
  Transmission Date: 20211014
  Serious: Yes (Hospitalization)
  Sender: FDA-Public Use
  Company Number: None

PATIENT
  Age: 53 Year
  Sex: Male
  Weight: 73 kg

DRUGS (1)
  1. KEYTRUDA [Suspect]
     Active Substance: PEMBROLIZUMAB
     Indication: NASOPHARYNGEAL CANCER STAGE III
     Dosage: ?          OTHER DOSE:200MG IN 100ML NS;OTHER FREQUENCY:Q3 WEEKS;?
     Route: 042
     Dates: start: 20210419

REACTIONS (7)
  - Dyspnoea [None]
  - Encephalopathy [None]
  - Swollen tongue [None]
  - Oropharyngeal pain [None]
  - Pharyngeal swelling [None]
  - Substance abuse [None]
  - Insomnia [None]

NARRATIVE: CASE EVENT DATE: 20210731
